FAERS Safety Report 17462719 (Version 2)
Quarter: 2020Q1

REPORT INFORMATION
  Report Type: Spontaneous
  Country: CH (occurrence: CH)
  Receive Date: 20200226
  Receipt Date: 20200302
  Transmission Date: 20200409
  Serious: Yes (Hospitalization, Disabling)
  Sender: FDA-Public Use
  Company Number: CH-ASTRAZENECA-2020SE25772

PATIENT
  Age: 65 Year
  Sex: Female
  Weight: 81.5 kg

DRUGS (11)
  1. KEYTRUDA [Suspect]
     Active Substance: PEMBROLIZUMAB
     Indication: METASTATIC MALIGNANT MELANOMA
     Route: 041
     Dates: start: 20190509, end: 20191227
  2. ESOMEP [Suspect]
     Active Substance: ESOMEPRAZOLE
     Indication: DYSPEPSIA
     Dosage: 40 MG AS REQUIRED
     Route: 048
     Dates: start: 201903
  3. CYMBALTA [Suspect]
     Active Substance: DULOXETINE HYDROCHLORIDE
     Indication: DEPRESSION
     Route: 048
     Dates: start: 2015
  4. ROSUVASTATIN. [Concomitant]
     Active Substance: ROSUVASTATIN
     Route: 048
     Dates: start: 2016
  5. TRITTICO [Concomitant]
     Active Substance: TRAZODONE HYDROCHLORIDE
     Indication: DEPRESSION
     Route: 048
     Dates: start: 201912, end: 20200127
  6. KALCIPOS D3 [Concomitant]
     Dosage: 500/800 0-1-0
     Route: 048
     Dates: start: 2015
  7. PROLIA [Concomitant]
     Active Substance: DENOSUMAB
     Dosage: ALLE 6 MONATE
     Route: 058
     Dates: start: 201704, end: 201904
  8. SURMONTIL [Suspect]
     Active Substance: TRIMIPRAMINE MALEATE
     Indication: DEPRESSION
     Route: 048
     Dates: start: 2015, end: 201912
  9. BELOC ZOK [Suspect]
     Active Substance: METOPROLOL SUCCINATE
     Indication: PRODUCT USED FOR UNKNOWN INDICATION
     Route: 048
     Dates: start: 2015
  10. FEMARA [Suspect]
     Active Substance: LETROZOLE
     Dosage: 2.5 MG 0-0-0-1 VON 12/2015 ? 06/2019 UND WIEDER SEIT 01/2020
     Route: 048
     Dates: start: 202001
  11. FEMARA [Suspect]
     Active Substance: LETROZOLE
     Dosage: 2.5 MG 0-0-0-1 VON 12/2015 ? 06/2019 UND WIEDER SEIT 01/2020
     Route: 048
     Dates: start: 201512, end: 201906

REACTIONS (6)
  - Dry mouth [Not Recovered/Not Resolved]
  - Hypothyroidism [Not Recovered/Not Resolved]
  - Polyglandular autoimmune syndrome type II [Not Recovered/Not Resolved]
  - Condition aggravated [Not Recovered/Not Resolved]
  - Hypophysitis [Not Recovered/Not Resolved]
  - Renal failure [Recovering/Resolving]

NARRATIVE: CASE EVENT DATE: 201805
